FAERS Safety Report 6754451-0 (Version None)
Quarter: 2010Q2

REPORT INFORMATION
  Report Type: 
  Country: None (occurrence: None)
  Receive Date: 20100603
  Receipt Date: 20100521
  Transmission Date: 20101027
  Serious: Yes (Death)
  Sender: FDA-Public Use
  Company Number: PHHY2010BR35246

PATIENT
  Sex: Male

DRUGS (4)
  1. EXFORGE [Suspect]
     Indication: HYPERTENSION
     Dosage: 1 DF, DAILY
     Route: 048
  2. TRAMAL [Concomitant]
     Indication: NEOPLASM MALIGNANT
     Dosage: 1 DF, QD
     Route: 048
     Dates: start: 20030101
  3. TYLEX [Concomitant]
     Indication: NEOPLASM MALIGNANT
     Dosage: 1 DF, DAILY
     Route: 048
     Dates: start: 20030101
  4. LYRICA [Concomitant]
     Indication: NEOPLASM MALIGNANT
     Dosage: 1 DF, DAILY
     Route: 048
     Dates: start: 20030101

REACTIONS (5)
  - CEREBRAL HAEMORRHAGE [None]
  - CEREBROVASCULAR ACCIDENT [None]
  - METASTASES TO BONE [None]
  - METASTASES TO CENTRAL NERVOUS SYSTEM [None]
  - PROSTATE CANCER [None]
